FAERS Safety Report 7462856-8 (Version None)
Quarter: 2011Q2

REPORT INFORMATION
  Report Type: 
  Country: None (occurrence: None)
  Receive Date: 20110506
  Receipt Date: 20110421
  Transmission Date: 20111010
  Serious: Yes (Other)
  Sender: FDA-Public Use
  Company Number: US-BAYER-201035222NA

PATIENT
  Age: 36 Year
  Sex: Female
  Weight: 91 kg

DRUGS (4)
  1. CLARITIN [Concomitant]
  2. YAZ [Suspect]
     Indication: MENOMETRORRHAGIA
  3. ADVIL LIQUI-GELS [Concomitant]
  4. YASMIN [Suspect]
     Indication: PRODUCT USED FOR UNKNOWN INDICATION
     Dates: start: 20060601, end: 20060701

REACTIONS (2)
  - DEEP VEIN THROMBOSIS [None]
  - PAIN [None]
